FAERS Safety Report 24840923 (Version 1)
Quarter: 2025Q1

REPORT INFORMATION
  Report Type: Spontaneous
  Country: US (occurrence: None)
  Receive Date: 20250114
  Receipt Date: 20250114
  Transmission Date: 20250409
  Serious: Yes (Disabling)
  Sender: FDA-CTU
  Company Number: None

PATIENT
  Age: 66 Year
  Sex: Female
  Weight: 51.75 kg

DRUGS (7)
  1. CIMZIA [Suspect]
     Active Substance: CERTOLIZUMAB PEGOL
     Indication: Rheumatoid arthritis
     Route: 058
     Dates: start: 20231001, end: 20250109
  2. IMURAN [Suspect]
     Active Substance: AZATHIOPRINE
  3. ALENDRONATE SODIUM [Concomitant]
     Active Substance: ALENDRONATE SODIUM
  4. POLYMYXIN B [Concomitant]
     Active Substance: POLYMYXIN B
  5. CALCIUM WITH D3 [Concomitant]
  6. MAGNESIUM [Concomitant]
     Active Substance: MAGNESIUM
  7. ZINC [Concomitant]
     Active Substance: ZINC

REACTIONS (7)
  - Urinary tract infection [None]
  - Rash [None]
  - Skin papilloma [None]
  - Eye infection [None]
  - Lip swelling [None]
  - Swelling face [None]
  - Product substitution issue [None]
